FAERS Safety Report 21653136 (Version 1)
Quarter: 2022Q4

REPORT INFORMATION
  Report Type: Spontaneous
  Country: US (occurrence: US)
  Receive Date: 20221128
  Receipt Date: 20221128
  Transmission Date: 20230113
  Serious: Yes (Hospitalization)
  Sender: FDA-Public Use
  Company Number: US-BEH-2022152439

PATIENT
  Sex: Male

DRUGS (1)
  1. PRIVIGEN [Suspect]
     Active Substance: HUMAN IMMUNOGLOBULIN G
     Indication: Encephalopathy
     Dosage: 30 GRAM, QOW
     Route: 042
     Dates: start: 202205

REACTIONS (4)
  - Illness [Unknown]
  - Therapy interrupted [Unknown]
  - No adverse event [Unknown]
  - Off label use [Unknown]
